FAERS Safety Report 19278292 (Version 1)
Quarter: 2021Q2

REPORT INFORMATION
  Report Type: Spontaneous
  Country: AR (occurrence: AR)
  Receive Date: 20210520
  Receipt Date: 20210520
  Transmission Date: 20210717
  Serious: Yes (Other)
  Sender: FDA-Public Use
  Company Number: AR-PFIZER INC-2021541132

PATIENT
  Age: 26 Year
  Sex: Female

DRUGS (1)
  1. PIROXICAM. [Suspect]
     Active Substance: PIROXICAM
     Indication: HAEMORRHOIDS
     Dosage: UNK

REACTIONS (3)
  - Maternal exposure during pregnancy [Unknown]
  - Oligohydramnios [Unknown]
  - Off label use [Unknown]
